FAERS Safety Report 12653717 (Version 2)
Quarter: 2016Q3

REPORT INFORMATION
  Report Type: Spontaneous
  Country: IN (occurrence: IN)
  Receive Date: 20160816
  Receipt Date: 20160919
  Transmission Date: 20161109
  Serious: Yes (Death)
  Sender: FDA-Public Use
  Company Number: IN-CIPLA LTD.-2016IN17363

PATIENT

DRUGS (1)
  1. LEVOFLOX [Suspect]
     Active Substance: LEVOFLOXACIN
     Dosage: 500 ML, UNK
     Route: 042

REACTIONS (1)
  - Death [Fatal]
